FAERS Safety Report 11110095 (Version 2)
Quarter: 2015Q2

REPORT INFORMATION
  Report Type: Spontaneous
  Country: US (occurrence: US)
  Receive Date: 20150513
  Receipt Date: 20150609
  Transmission Date: 20150821
  Serious: No
  Sender: FDA-Public Use
  Company Number: US-PFIZER INC-2015160763

PATIENT
  Age: 60 Year
  Sex: Male

DRUGS (6)
  1. ASA [Suspect]
     Active Substance: ASPIRIN
     Dosage: UNK
  2. LEVAQUIN [Suspect]
     Active Substance: LEVOFLOXACIN
     Dosage: UNK
  3. CODEINE [Suspect]
     Active Substance: CODEINE
     Dosage: UNK
  4. VIC [Suspect]
     Active Substance: MINERALS\VITAMINS
     Dosage: UNK
  5. MOTRIN [Suspect]
     Active Substance: IBUPROFEN
     Dosage: UNK
  6. VITAMIN C [Suspect]
     Active Substance: ASCORBIC ACID
     Dosage: UNK

REACTIONS (1)
  - Drug hypersensitivity [Unknown]
